FAERS Safety Report 5573412-0 (Version None)
Quarter: 2007Q4

REPORT INFORMATION
  Report Type: 
  Country: None (occurrence: None)
  Receive Date: 20071226
  Receipt Date: 20071214
  Transmission Date: 20080405
  Serious: Yes (Hospitalization)
  Sender: FDA-Public Use
  Company Number: US-BAYER-200713572BCC

PATIENT
  Age: 59 Year
  Sex: Female
  Weight: 70 kg

DRUGS (5)
  1. ALEVE [Suspect]
     Indication: BACK PAIN
     Dosage: TOTAL DAILY DOSE: 440 MG  UNIT DOSE: 220 MG
     Route: 048
     Dates: start: 20071106
  2. PAXIL [Concomitant]
     Indication: DEPRESSION
     Dates: start: 20071105
  3. TRAZODONE HCL [Concomitant]
     Indication: SLEEP DISORDER
     Dates: start: 20071105
  4. DETROL LA [Concomitant]
     Indication: URINARY INCONTINENCE
     Dates: start: 20071105
  5. COUMADIN [Concomitant]
     Indication: ANTICOAGULANT THERAPY
     Dates: start: 20071105

REACTIONS (6)
  - HYPERSENSITIVITY [None]
  - LIP SWELLING [None]
  - PALMAR ERYTHEMA [None]
  - PRURITUS GENERALISED [None]
  - THROAT TIGHTNESS [None]
  - TREMOR [None]
